FAERS Safety Report 9928475 (Version 2)
Quarter: 2015Q4

REPORT INFORMATION
  Report Type: Report from Study
  Country: US (occurrence: US)
  Receive Date: 20140227
  Receipt Date: 20151020
  Transmission Date: 20160305
  Serious: Yes (Hospitalization)
  Sender: FDA-Public Use
  Company Number: US-ASTELLAS-2014US002008

PATIENT
  Sex: Female

DRUGS (3)
  1. ERLOTINIB [Suspect]
     Active Substance: ERLOTINIB
     Indication: RENAL CANCER STAGE IV
  2. ERLOTINIB [Suspect]
     Active Substance: ERLOTINIB
     Indication: OVARIAN CANCER STAGE IV
     Route: 065
     Dates: start: 201311
  3. ERLOTINIB [Suspect]
     Active Substance: ERLOTINIB
     Indication: CARCINOID TUMOUR

REACTIONS (5)
  - Rash [Unknown]
  - Off label use [Unknown]
  - Dyspnoea [Unknown]
  - Diarrhoea [Unknown]
  - Epistaxis [Unknown]
